FAERS Safety Report 4503888-9 (Version None)
Quarter: 2004Q4

REPORT INFORMATION
  Report Type: 
  Country: None (occurrence: None)
  Receive Date: 20041115
  Receipt Date: 20041102
  Transmission Date: 20050328
  Serious: Yes (Other)
  Sender: FDA-Public Use
  Company Number: OMPQ-NO-0411S-1322

PATIENT
  Age: 1 Year
  Sex: Male

DRUGS (1)
  1. OMNIPAQUE 180 [Suspect]
     Indication: HEART DISEASE CONGENITAL
     Dosage: 3.4 ML/KG, SINGLE DOSE, I.A.
     Route: 014
     Dates: start: 20040906, end: 20040906

REACTIONS (1)
  - DEPRESSED LEVEL OF CONSCIOUSNESS [None]
